FAERS Safety Report 15813415 (Version 1)
Quarter: 2019Q1

REPORT INFORMATION
  Report Type: Spontaneous
  Country: PT (occurrence: PT)
  Receive Date: 20190111
  Receipt Date: 20190111
  Transmission Date: 20190417
  Serious: Yes (Other)
  Sender: FDA-Public Use
  Company Number: PT-MYLANLABS-2019M1001928

PATIENT
  Age: 51 Year
  Sex: Female

DRUGS (5)
  1. CICLOSPORIN [Suspect]
     Active Substance: CYCLOSPORINE
     Indication: LUPUS NEPHRITIS
     Dosage: 2.8 MILLIGRAM/KILOGRAM, QD, (2.6 - 3.7, MG/KG, QD)
     Route: 065
  2. MYCOPHENOLATE MOFETIL. [Suspect]
     Active Substance: MYCOPHENOLATE MOFETIL
     Indication: LUPUS NEPHRITIS
     Dosage: 2000 MILLIGRAM, QD, (2000 MG, QD)
     Route: 065
  3. PREDNISONE. [Suspect]
     Active Substance: PREDNISONE
     Indication: LUPUS NEPHRITIS
     Dosage: 6 MILLIGRAM, QD, (6 MG, QD)
     Route: 065
  4. PREDNISONE. [Suspect]
     Active Substance: PREDNISONE
     Dosage: 6 MILLIGRAM, QD, (6 MG, QD)
     Route: 065
  5. PREDNISONE. [Suspect]
     Active Substance: PREDNISONE
     Dosage: 17.5 MILLIGRAM, QD
     Route: 065

REACTIONS (4)
  - Therapy non-responder [Unknown]
  - Blood creatinine increased [Unknown]
  - Product use in unapproved indication [Unknown]
  - Proteinuria [Unknown]
